FAERS Safety Report 10868582 (Version 4)
Quarter: 2015Q2

REPORT INFORMATION
  Report Type: Spontaneous
  Country: JP (occurrence: JP)
  Receive Date: 20150225
  Receipt Date: 20150416
  Transmission Date: 20150821
  Serious: Yes (Hospitalization, Other)
  Sender: FDA-Public Use
  Company Number: JP-PFIZER INC-2015065414

PATIENT
  Sex: Female
  Weight: 2.5 kg

DRUGS (6)
  1. JZOLOFT [Suspect]
     Active Substance: SERTRALINE HYDROCHLORIDE
     Indication: PANIC DISORDER
     Dosage: 25 MG, 1X/DAY
     Route: 064
     Dates: start: 20150203, end: 20150217
  2. CONSTAN [Concomitant]
     Active Substance: ALPRAZOLAM
     Indication: PANIC DISORDER
  3. CONSTAN [Concomitant]
     Active Substance: ALPRAZOLAM
     Indication: ANXIETY
     Dosage: 0.4 MG, 3X/DAY
     Route: 064
     Dates: start: 20141031, end: 20150114
  4. JZOLOFT [Suspect]
     Active Substance: SERTRALINE HYDROCHLORIDE
     Indication: DEPRESSION
     Dosage: 50 MG, 1X/DAY
     Route: 064
     Dates: start: 20141031, end: 20150202
  5. MEILAX [Concomitant]
     Active Substance: ETHYL LOFLAZEPATE
     Indication: ANXIETY
     Dosage: 1 DF, 1X/DAY
     Route: 064
     Dates: start: 20150114
  6. MEILAX [Concomitant]
     Active Substance: ETHYL LOFLAZEPATE
     Indication: PANIC DISORDER

REACTIONS (6)
  - Tachypnoea [Recovered/Resolved]
  - Persistent foetal circulation [Recovered/Resolved]
  - Neonatal asphyxia [Recovered/Resolved]
  - Low birth weight baby [Recovered/Resolved]
  - Maternal exposure during pregnancy [Recovered/Resolved]
  - Premature baby [Recovered/Resolved]

NARRATIVE: CASE EVENT DATE: 20150217
